FAERS Safety Report 4739028-0 (Version None)
Quarter: 2005Q3

REPORT INFORMATION
  Report Type: 
  Country: None (occurrence: None)
  Receive Date: 20050801
  Receipt Date: 20041221
  Transmission Date: 20060218
  Serious: Yes (Hospitalization, Disabling)
  Sender: FDA-Public Use
  Company Number: 211267

PATIENT
  Age: 68 Year
  Sex: Male
  Weight: 129.7 kg

DRUGS (1)
  1. RITUXAN [Suspect]
     Indication: NON-HODGKIN'S LYMPHOMA
     Dosage: 880 MG, 1/WEEK, INTRAVENOUS
     Route: 042
     Dates: start: 20040812, end: 20040831

REACTIONS (1)
  - ALVEOLITIS ALLERGIC [None]
